FAERS Safety Report 25598062 (Version 3)
Quarter: 2025Q3

REPORT INFORMATION
  Report Type: Spontaneous
  Country: US (occurrence: US)
  Receive Date: 20250723
  Receipt Date: 20250820
  Transmission Date: 20251020
  Serious: No
  Sender: PFIZER
  Company Number: US-PFIZER INC-202500145783

PATIENT
  Age: 12 Year
  Sex: Male
  Weight: 39 kg

DRUGS (1)
  1. BICILLIN L-A [Suspect]
     Active Substance: PENICILLIN G BENZATHINE
     Indication: Pharyngitis streptococcal
     Route: 030
     Dates: start: 20250529

REACTIONS (5)
  - Pain [Unknown]
  - Swelling [Unknown]
  - Erythema [Unknown]
  - Limb discomfort [Unknown]
  - Recalled product administered [Unknown]

NARRATIVE: CASE EVENT DATE: 20250529
